FAERS Safety Report 20113379 (Version 1)
Quarter: 2021Q4

REPORT INFORMATION
  Report Type: Spontaneous
  Country: US (occurrence: US)
  Receive Date: 20211125
  Receipt Date: 20211125
  Transmission Date: 20220303
  Serious: No
  Sender: FDA-Public Use
  Company Number: US-GSKCCFUS-Case-01219523_AE-71453

PATIENT
  Sex: Female

DRUGS (1)
  1. TRELEGY ELLIPTA [Suspect]
     Active Substance: FLUTICASONE FUROATE\UMECLIDINIUM BROMIDE\VILANTEROL TRIFENATATE
     Indication: Product used for unknown indication
     Dosage: UNK
     Dates: start: 202110

REACTIONS (6)
  - Eye pain [Recovered/Resolved]
  - Oropharyngeal pain [Recovered/Resolved]
  - Neck pain [Recovered/Resolved]
  - Chest discomfort [Unknown]
  - Eye disorder [Recovered/Resolved]
  - Drug ineffective [Recovered/Resolved]
